FAERS Safety Report 7600544-5 (Version None)
Quarter: 2011Q3

REPORT INFORMATION
  Report Type: 
  Country: None (occurrence: None)
  Receive Date: 20110706
  Receipt Date: 20110706
  Transmission Date: 20111222
  Serious: Yes (Hospitalization, Other)
  Sender: FDA-Public Use
  Company Number: None

PATIENT
  Age: 20 Year
  Sex: Female
  Weight: 56.6996 kg

DRUGS (2)
  1. MIRENA [Suspect]
     Indication: CONTRACEPTION
     Dosage: 5 YR
     Dates: start: 20090301
  2. MIRENA [Suspect]
     Indication: CONTRACEPTION
     Dosage: 5 YR
     Dates: start: 20110603

REACTIONS (6)
  - ABDOMINAL PAIN UPPER [None]
  - SCAR [None]
  - GASTRIC PERFORATION [None]
  - ABDOMINAL PAIN [None]
  - COMPLICATION OF DEVICE INSERTION [None]
  - DEVICE DISLOCATION [None]
